FAERS Safety Report 14422509 (Version 1)
Quarter: 2018Q1

REPORT INFORMATION
  Report Type: Spontaneous
  Country: US (occurrence: US)
  Receive Date: 20180123
  Receipt Date: 20180123
  Transmission Date: 20180509
  Serious: No
  Sender: FDA-Public Use
  Company Number: PHEH2018US001907

PATIENT
  Sex: Female

DRUGS (1)
  1. ETODOLAC TABLETS [Suspect]
     Active Substance: ETODOLAC
     Indication: PRODUCT USED FOR UNKNOWN INDICATION
     Dosage: 0.5 DF TO 1DF, Q8H
     Route: 065

REACTIONS (7)
  - Neck pain [Unknown]
  - Chills [Unknown]
  - Diarrhoea [Unknown]
  - Pyrexia [Unknown]
  - Flatulence [Unknown]
  - Inappropriate schedule of drug administration [Unknown]
  - Abdominal pain lower [Unknown]
